FAERS Safety Report 11302278 (Version 1)
Quarter: 2015Q3

REPORT INFORMATION
  Report Type: Spontaneous
  Country: US (occurrence: US)
  Receive Date: 20150722
  Receipt Date: 20150722
  Transmission Date: 20151125
  Serious: No
  Sender: FDA-Public Use
  Company Number: US-ELI_LILLY_AND_COMPANY-US200704002455

PATIENT
  Age: 59 Year
  Sex: Female

DRUGS (4)
  1. EVISTA [Suspect]
     Active Substance: RALOXIFENE HYDROCHLORIDE
     Indication: OSTEOPOROSIS
     Dosage: 60 MG, UNK
     Route: 048
     Dates: start: 2006
  2. CALCIUM, COMBINATIONS WITH OTHER DRUGS [Concomitant]
     Dosage: 1000 MG, UNK
  3. MULTIVITAMIN [Concomitant]
     Active Substance: VITAMINS
     Dosage: UNK, DAILY (1/D)
  4. CALCIUM, COMBINATIONS WITH OTHER DRUGS [Concomitant]
     Dosage: 500 MG, UNK
     Dates: end: 200702

REACTIONS (3)
  - Asthma [Recovered/Resolved]
  - Dyspnoea [Recovered/Resolved]
  - Urine calcium increased [Recovering/Resolving]

NARRATIVE: CASE EVENT DATE: 200606
